FAERS Safety Report 12392923 (Version 1)
Quarter: 2016Q2

REPORT INFORMATION
  Report Type: Spontaneous
  Country: US (occurrence: None)
  Receive Date: 20160520
  Receipt Date: 20160520
  Transmission Date: 20160815
  Serious: No
  Sender: FDA-Public Use
  Company Number: None

PATIENT
  Age: 55 Year
  Sex: Female

DRUGS (9)
  1. ARIPIPRAZOLE. [Concomitant]
     Active Substance: ARIPIPRAZOLE
  2. ABILIFY [Concomitant]
     Active Substance: ARIPIPRAZOLE
  3. ICLUSIG [Concomitant]
     Active Substance: PONATINIB
  4. BUPROBAN [Concomitant]
     Active Substance: BUPROPION HYDROCHLORIDE
  5. ALPRAZOLAM. [Concomitant]
     Active Substance: ALPRAZOLAM
  6. PROAIR HFA [Concomitant]
     Active Substance: ALBUTEROL SULFATE
  7. SPRYCEL [Suspect]
     Active Substance: DASATINIB
     Indication: CHRONIC MYELOID LEUKAEMIA
     Route: 048
     Dates: start: 20151231
  8. PAROXETINE. [Concomitant]
     Active Substance: PAROXETINE
  9. HYDROCO/APAP [Concomitant]
     Active Substance: ACETAMINOPHEN\HYDROCODONE

REACTIONS (3)
  - Product substitution issue [None]
  - Drug ineffective [None]
  - Stomatitis [None]

NARRATIVE: CASE EVENT DATE: 201604
